FAERS Safety Report 15606031 (Version 1)
Quarter: 2018Q4

REPORT INFORMATION
  Report Type: Spontaneous
  Country: FR (occurrence: FR)
  Receive Date: 20181112
  Receipt Date: 20181112
  Transmission Date: 20190205
  Serious: Yes (Death, Hospitalization, Other)
  Sender: FDA-Public Use
  Company Number: FR-BRISTOL-MYERS SQUIBB COMPANY-BMS-2018-102186

PATIENT
  Age: 88 Year
  Sex: Female

DRUGS (1)
  1. COUMADINE [Suspect]
     Active Substance: WARFARIN SODIUM
     Indication: PERIPHERAL ISCHAEMIA
     Dosage: 2.5 MG, 1 DAY
     Route: 048
     Dates: start: 201601, end: 201602

REACTIONS (3)
  - Septic shock [Fatal]
  - Gastrointestinal haemorrhage [Recovering/Resolving]
  - Ischaemic stroke [Fatal]

NARRATIVE: CASE EVENT DATE: 201602
